FAERS Safety Report 9896925 (Version 1)
Quarter: 2014Q1

REPORT INFORMATION
  Report Type: Spontaneous
  Country: PA (occurrence: PA)
  Receive Date: 20140214
  Receipt Date: 20140214
  Transmission Date: 20141002
  Serious: Yes (Hospitalization, Other)
  Sender: FDA-Public Use
  Company Number: PA-AMGEN-PANSP2014010327

PATIENT
  Age: 33 Year
  Sex: Female

DRUGS (1)
  1. ENBREL [Suspect]
     Indication: RHEUMATOID ARTHRITIS
     Dosage: UNK
     Route: 065
     Dates: start: 201207

REACTIONS (5)
  - Mononeuritis [Unknown]
  - Polyarthritis [Unknown]
  - Dysaesthesia [Unknown]
  - Pyrexia [Unknown]
  - Vasculitis [Unknown]
